FAERS Safety Report 9329363 (Version 4)
Quarter: 2013Q4

REPORT INFORMATION
  Report Type: Report from Study
  Country: GB (occurrence: GB)
  Receive Date: 20130604
  Receipt Date: 20131031
  Transmission Date: 20140711
  Serious: Yes (Hospitalization)
  Sender: FDA-Public Use
  Company Number: GB-GLAXOSMITHKLINE-B0896473A

PATIENT
  Sex: Male
  Weight: 80 kg

DRUGS (3)
  1. PAZOPANIB [Suspect]
     Indication: RENAL CELL CARCINOMA
     Dosage: 800MG PER DAY
     Route: 048
     Dates: start: 20130423, end: 20130430
  2. FRUSEMIDE [Concomitant]
     Indication: CARDIAC DISORDER
     Dosage: 40MG PER DAY
     Route: 048
     Dates: start: 20130507
  3. DIGOXIN [Concomitant]
     Indication: CARDIAC DISORDER
     Dosage: 62.5MG PER DAY
     Route: 048
     Dates: start: 20130507

REACTIONS (1)
  - Malaise [Recovered/Resolved]
